FAERS Safety Report 6169528-0 (Version None)
Quarter: 2009Q2

REPORT INFORMATION
  Report Type: 
  Country: None (occurrence: None)
  Receive Date: 20090428
  Receipt Date: 20090422
  Transmission Date: 20091009
  Serious: Yes (Other)
  Sender: FDA-Public Use
  Company Number: JP-JNJFOC-20090405962

PATIENT
  Sex: Male
  Weight: 6.3 kg

DRUGS (4)
  1. ITRIZOLE [Suspect]
     Indication: ANTIFUNGAL PROPHYLAXIS
     Route: 041
  2. MEROPEN [Concomitant]
     Indication: SEPSIS
     Route: 042
  3. MINOCYCLINE HCL [Concomitant]
     Indication: SEPSIS
     Route: 042
  4. PROGRAF [Concomitant]
     Indication: GRAFT VERSUS HOST DISEASE
     Route: 042

REACTIONS (3)
  - HEPATIC FUNCTION ABNORMAL [None]
  - RENAL IMPAIRMENT [None]
  - WHITE BLOOD CELL COUNT DECREASED [None]
